FAERS Safety Report 6990506 (Version 2)
Quarter: 2012Q4

REPORT INFORMATION
  Report Type: 
  Country: BR (occurrence: BR)
  Receive Date: 20090508
  Receipt Date: 20120829
  Transmission Date: 20130627
  Serious: Yes (Hospitalization, Other)
  Sender: FDA-Public Use
  Company Number: PHHY2009BR17521

PATIENT
  Age: 82 Year
  Sex: Female
  Weight: 71 kg

DRUGS (3)
  1. DIOVAN [Suspect]
     Indication: HYPERTENSION
     Dosage: 1 DF, UNK
     Route: 048
  2. FORASEQ [Concomitant]
     Indication: DYSPNOEA
  3. SIMVASTATIN [Concomitant]
     Indication: BLOOD CHOLESTEROL ABNORMAL

REACTIONS (15)
  - Pneumonia [Unknown]
  - Wheezing [Unknown]
  - Head discomfort [Unknown]
  - Hiatus hernia [Unknown]
  - Venous occlusion [Not Recovered/Not Resolved]
  - Hypersensitivity [Recovered/Resolved]
  - Lip swelling [Recovered/Resolved]
  - Swelling face [Recovered/Resolved]
  - Parosmia [Unknown]
  - Feeling jittery [Recovered/Resolved]
  - Nervousness [Unknown]
  - Tinnitus [Recovered/Resolved]
  - Pain in extremity [Not Recovered/Not Resolved]
  - Arthralgia [Not Recovered/Not Resolved]
  - Nausea [Not Recovered/Not Resolved]
